FAERS Safety Report 20825248 (Version 1)
Quarter: 2022Q2

REPORT INFORMATION
  Report Type: Spontaneous
  Country: US (occurrence: US)
  Receive Date: 20220513
  Receipt Date: 20220513
  Transmission Date: 20220721
  Serious: No
  Sender: FDA-Public Use
  Company Number: US-FRESENIUS KABI-FK202205403

PATIENT
  Age: 70 Year
  Sex: Male
  Weight: 101.6 kg

DRUGS (27)
  1. POLOCAINE-MPF [Suspect]
     Active Substance: MEPIVACAINE HYDROCHLORIDE
     Indication: Nerve block
     Route: 008
     Dates: start: 20220504, end: 20220504
  2. POLOCAINE-MPF [Suspect]
     Active Substance: MEPIVACAINE HYDROCHLORIDE
     Indication: Intraoperative care
  3. CEFAZOLIN [Concomitant]
     Active Substance: CEFAZOLIN
     Indication: Preoperative care
     Route: 042
  4. VANCOMYCIN [Concomitant]
     Active Substance: VANCOMYCIN
     Indication: Preoperative care
     Route: 065
  5. ROPIVACAINE [Concomitant]
     Active Substance: ROPIVACAINE
     Indication: Preoperative care
     Dosage: R.E.C.K. COMPOUNDED SYRINGE BY QUVA PHARMA (ROPIVACAINE, EPINEPHRINE, CLONIDINE, KETOROLAC: 123-0.24
     Route: 014
  6. EPINEPHRINE [Concomitant]
     Active Substance: EPINEPHRINE
     Indication: Preoperative care
     Dosage: R.E.C.K. COMPOUNDED SYRINGE BY QUVA PHARMA (ROPIVACAINE, EPINEPHRINE, CLONIDINE, KETOROLAC: 123-0.24
     Route: 014
  7. CLONIDINE [Concomitant]
     Active Substance: CLONIDINE
     Indication: Preoperative care
     Dosage: R.E.C.K. COMPOUNDED SYRINGE BY QUVA PHARMA (ROPIVACAINE, EPINEPHRINE, CLONIDINE, KETOROLAC: 123-0.24
     Route: 014
  8. KETOROLAC [Concomitant]
     Active Substance: KETOROLAC TROMETHAMINE
     Indication: Preoperative care
     Dosage: R.E.C.K. COMPOUNDED SYRINGE BY QUVA PHARMA (ROPIVACAINE, EPINEPHRINE, CLONIDINE, KETOROLAC: 123-0.24
     Route: 014
  9. CELECOXIB [Concomitant]
     Active Substance: CELECOXIB
     Indication: Preoperative care
     Route: 065
     Dates: start: 20220504, end: 20220504
  10. DULOXETINE [Concomitant]
     Active Substance: DULOXETINE
     Indication: Preoperative care
     Route: 065
     Dates: start: 20220504, end: 20220504
  11. DEXAMETHASONE [Concomitant]
     Active Substance: DEXAMETHASONE
     Indication: Preoperative care
     Route: 042
     Dates: start: 20220504, end: 20220504
  12. TRANEXAMIC ACID [Concomitant]
     Active Substance: TRANEXAMIC ACID
     Indication: Intraoperative care
     Route: 065
     Dates: start: 20220504, end: 20220504
  13. EPHEDRINE [Concomitant]
     Active Substance: EPHEDRINE
     Indication: Intraoperative care
     Route: 065
     Dates: start: 20220504, end: 20220504
  14. EPHEDRINE [Concomitant]
     Active Substance: EPHEDRINE
     Route: 065
     Dates: start: 20220504, end: 20220504
  15. EPHEDRINE [Concomitant]
     Active Substance: EPHEDRINE
     Route: 065
     Dates: start: 20220504, end: 20220504
  16. EPHEDRINE [Concomitant]
     Active Substance: EPHEDRINE
     Route: 065
     Dates: start: 20220504, end: 20220504
  17. EPHEDRINE [Concomitant]
     Active Substance: EPHEDRINE
     Route: 065
     Dates: start: 20220504, end: 20220504
  18. KETAMINE [Concomitant]
     Active Substance: KETAMINE
     Indication: Intraoperative care
     Route: 065
     Dates: start: 20220504, end: 20220504
  19. KETAMINE [Concomitant]
     Active Substance: KETAMINE
     Route: 065
     Dates: start: 20220504, end: 20220504
  20. KETAMINE [Concomitant]
     Active Substance: KETAMINE
     Route: 065
     Dates: start: 20220504, end: 20220504
  21. KETAMINE [Concomitant]
     Active Substance: KETAMINE
     Route: 065
     Dates: start: 20220504, end: 20220504
  22. KETAMINE [Concomitant]
     Active Substance: KETAMINE
     Route: 065
     Dates: start: 20220504, end: 20220504
  23. PHENYLEPHRINE [Concomitant]
     Active Substance: PHENYLEPHRINE HYDROCHLORIDE
     Indication: Intraoperative care
     Route: 065
     Dates: start: 20220504, end: 20220504
  24. PHENYLEPHRINE [Concomitant]
     Active Substance: PHENYLEPHRINE HYDROCHLORIDE
     Route: 065
     Dates: start: 20220504, end: 20220504
  25. PHENYLEPHRINE [Concomitant]
     Active Substance: PHENYLEPHRINE HYDROCHLORIDE
     Route: 065
     Dates: start: 20220504, end: 20220504
  26. PROPOFOL [Concomitant]
     Active Substance: PROPOFOL
     Indication: Intraoperative care
     Route: 065
     Dates: start: 20220504, end: 20220504
  27. PROPOFOL [Concomitant]
     Active Substance: PROPOFOL
     Indication: Sedative therapy

REACTIONS (1)
  - Therapeutic response shortened [Unknown]

NARRATIVE: CASE EVENT DATE: 20220504
